FAERS Safety Report 19047502 (Version 1)
Quarter: 2021Q1

REPORT INFORMATION
  Report Type: Spontaneous
  Country: CA (occurrence: CA)
  Receive Date: 20210323
  Receipt Date: 20210323
  Transmission Date: 20210420
  Serious: Yes (Life-Threatening, Disabling, Other)
  Sender: FDA-Public Use
  Company Number: CA-009507513-2103CAN005578

PATIENT
  Age: 9 Year
  Sex: Male
  Weight: 45 kg

DRUGS (69)
  1. BUSULFAN. [Suspect]
     Active Substance: BUSULFAN
     Indication: ACUTE MYELOID LEUKAEMIA
     Dosage: 11 MILLIGRAM, Q6H
     Route: 042
  2. CYTARABINE. [Suspect]
     Active Substance: CYTARABINE
     Indication: ACUTE MYELOID LEUKAEMIA
     Dosage: 1000 MILLIGRAM
     Route: 042
  3. RECOMBINANT HUMAN INTERLEUKIN?2 (UNSPECIFIED) [Suspect]
     Active Substance: ALDESLEUKIN
     Indication: ACUTE MYELOID LEUKAEMIA
     Dosage: 2.25 MILLION INTERNATIONAL UNIT
     Route: 042
  4. ALLOPURINOL. [Concomitant]
     Active Substance: ALLOPURINOL
  5. CYCLOSPORINE. [Concomitant]
     Active Substance: CYCLOSPORINE
  6. METHYLPREDNISOLONE. [Concomitant]
     Active Substance: METHYLPREDNISOLONE
  7. METRONIDAZOLE. [Concomitant]
     Active Substance: METRONIDAZOLE
  8. NIFEDIPINE. [Concomitant]
     Active Substance: NIFEDIPINE
  9. PANTOPRAZOLE [Concomitant]
     Active Substance: PANTOPRAZOLE
  10. PROTAMINE SULFATE. [Concomitant]
     Active Substance: PROTAMINE SULFATE
  11. PYRIDOXINE [Concomitant]
     Active Substance: PYRIDOXINE
  12. INTRON A [Suspect]
     Active Substance: INTERFERON ALFA-2B
     Indication: ACUTE MYELOID LEUKAEMIA
     Dosage: 1 MILLION INTERNATIONAL UNIT, QD
     Route: 058
  13. DAUNORUBICIN HYDROCHLORIDE. [Suspect]
     Active Substance: DAUNORUBICIN HYDROCHLORIDE
     Indication: ACUTE MYELOID LEUKAEMIA
     Dosage: 18 MILLIGRAM
     Route: 042
  14. FLUCONAZOLE. [Concomitant]
     Active Substance: FLUCONAZOLE
  15. METOCLOPRAMIDE. [Concomitant]
     Active Substance: METOCLOPRAMIDE
  16. MESNA. [Concomitant]
     Active Substance: MESNA
  17. PIPERACILLIN AND TAZOBACTAM [Concomitant]
     Active Substance: PIPERACILLIN SODIUM\TAZOBACTAM SODIUM
  18. SULFAMETHOXAZOLE (+) TRIMETHOPRIM [Concomitant]
     Active Substance: SULFAMETHOXAZOLE\TRIMETHOPRIM
  19. URSODIOL. [Concomitant]
     Active Substance: URSODIOL
  20. VANCOMYCIN [Concomitant]
     Active Substance: VANCOMYCIN
  21. FLUDARABINE PHOSPHATE. [Suspect]
     Active Substance: FLUDARABINE PHOSPHATE
     Indication: ACUTE MYELOID LEUKAEMIA
     Dosage: 15 MILLIGRAM
     Route: 042
  22. METHOTREXATE. [Suspect]
     Active Substance: METHOTREXATE
     Indication: ACUTE MYELOID LEUKAEMIA
     Dosage: 7.5 MILLIGRAM
     Route: 042
  23. DIAZEPAM. [Concomitant]
     Active Substance: DIAZEPAM
  24. FAMOTIDINE. [Concomitant]
     Active Substance: FAMOTIDINE
  25. HYDROXYZINE [Concomitant]
     Active Substance: HYDROXYZINE HYDROCHLORIDE
  26. LEUCOVORIN. [Concomitant]
     Active Substance: LEUCOVORIN
  27. TOBRAMYCIN. [Concomitant]
     Active Substance: TOBRAMYCIN
  28. RECOMBINANT HUMAN INTERLEUKIN?2 (UNSPECIFIED) [Suspect]
     Active Substance: ALDESLEUKIN
     Dosage: 1.25 MILLION INTERNATIONAL UNIT, Q12H
  29. ACETAMINOPHEN. [Concomitant]
     Active Substance: ACETAMINOPHEN
  30. DEFIBROTIDE [Concomitant]
     Active Substance: DEFIBROTIDE (BOVINE)
  31. HYDROCORTISONE. [Concomitant]
     Active Substance: HYDROCORTISONE
  32. LEVETIRACETAM. [Concomitant]
     Active Substance: LEVETIRACETAM
     Route: 065
  33. MORPHINE [Concomitant]
     Active Substance: MORPHINE
  34. NALOXONE (NALOXONE HYDROCHLORIDE) [Concomitant]
     Active Substance: NALOXONE HYDROCHLORIDE
  35. ONDANSETRON [Concomitant]
     Active Substance: ONDANSETRON
  36. POTASSIUM (UNSPECIFIED) [Concomitant]
     Active Substance: POTASSIUM
  37. ETOPOSIDE. [Suspect]
     Active Substance: ETOPOSIDE
     Indication: ACUTE MYELOID LEUKAEMIA
     Dosage: 60 MILLIGRAM
     Route: 042
  38. ATROPINE. [Concomitant]
     Active Substance: ATROPINE
  39. DEXAMETHASONE. [Concomitant]
     Active Substance: DEXAMETHASONE
  40. DIMENHYDRINATE. [Concomitant]
     Active Substance: DIMENHYDRINATE
  41. NYSTATIN. [Concomitant]
     Active Substance: NYSTATIN
  42. RANITIDINE. [Concomitant]
     Active Substance: RANITIDINE
  43. SODIUM (UNSPECIFIED) [Concomitant]
  44. ACYCLOVIR. [Concomitant]
     Active Substance: ACYCLOVIR
  45. AMBISOME [Concomitant]
     Active Substance: AMPHOTERICIN B
  46. CEFTRIAXONE. [Concomitant]
     Active Substance: CEFTRIAXONE
  47. CLOBAZAM. [Concomitant]
     Active Substance: CLOBAZAM
  48. DOCUSATE SODIUM. [Concomitant]
     Active Substance: DOCUSATE SODIUM
  49. FENTANYL. [Concomitant]
     Active Substance: FENTANYL
  50. FILGRASTIM [Concomitant]
     Active Substance: FILGRASTIM
  51. HEPARIN SODIUM. [Concomitant]
     Active Substance: HEPARIN SODIUM
  52. MIDAZOLAM. [Concomitant]
     Active Substance: MIDAZOLAM
  53. SYNAGIS [Concomitant]
     Active Substance: PALIVIZUMAB
  54. MITOXANTRONE HYDROCHLORIDE. [Suspect]
     Active Substance: MITOXANTRONE HYDROCHLORIDE
     Indication: ACUTE MYELOID LEUKAEMIA
     Dosage: 4.6 MILLIGRAM
     Route: 042
  55. AMOXICILLIN. [Concomitant]
     Active Substance: AMOXICILLIN
  56. FUROSEMIDE. [Concomitant]
     Active Substance: FUROSEMIDE
  57. LORAZEPAM. [Concomitant]
     Active Substance: LORAZEPAM
  58. PENTAMIDINE ISETHIONATE. [Concomitant]
     Active Substance: PENTAMIDINE ISETHIONATE
  59. CLAVULANATE POTASSIUM (+) TICARCILLIN DISODIUM [Concomitant]
  60. CYCLOPHOSPHAMIDE. [Suspect]
     Active Substance: CYCLOPHOSPHAMIDE
     Indication: ACUTE MYELOID LEUKAEMIA
     Dosage: 500 MILLIGRAM
     Route: 042
  61. IDARUBICIN HYDROCHLORIDE. [Suspect]
     Active Substance: IDARUBICIN HYDROCHLORIDE
     Indication: ACUTE MYELOID LEUKAEMIA
     Dosage: 6 MILLIGRAM
     Route: 042
  62. ALTEPLASE. [Concomitant]
     Active Substance: ALTEPLASE
  63. CASPOFUNGIN ACETATE. [Concomitant]
     Active Substance: CASPOFUNGIN ACETATE
  64. CEFOTAXIME SODIUM [Concomitant]
     Active Substance: CEFOTAXIME SODIUM
  65. GRANISETRON [Concomitant]
     Active Substance: GRANISETRON
  66. MEPERIDINE HYDROCHLORIDE. [Concomitant]
     Active Substance: MEPERIDINE HYDROCHLORIDE
  67. MEROPENEM. [Concomitant]
     Active Substance: MEROPENEM
  68. PHYTONADIONE. [Concomitant]
     Active Substance: PHYTONADIONE
  69. PROPOFOL. [Concomitant]
     Active Substance: PROPOFOL
     Route: 065

REACTIONS (3)
  - Heart transplant [Unknown]
  - Pulmonary hypertension [Unknown]
  - Restrictive cardiomyopathy [Unknown]
